FAERS Safety Report 7908700-3 (Version None)
Quarter: 2011Q4

REPORT INFORMATION
  Report Type: 
  Country: None (occurrence: None)
  Receive Date: 20111111
  Receipt Date: 20111108
  Transmission Date: 20120403
  Serious: Yes (Other)
  Sender: FDA-Public Use
  Company Number: FR-BAYER-2011-092292

PATIENT
  Age: 30 Year
  Sex: Female
  Weight: 55.782 kg

DRUGS (1)
  1. ESTRADIOL VALERATE/DIENOGEST [Suspect]
     Dosage: UNK
     Route: 048
     Dates: start: 20100901, end: 20110301

REACTIONS (3)
  - PREMATURE DELIVERY [None]
  - PREGNANCY ON ORAL CONTRACEPTIVE [None]
  - AMENORRHOEA [None]
